FAERS Safety Report 10211739 (Version 2)
Quarter: 2014Q2

REPORT INFORMATION
  Report Type: Spontaneous
  Country: IT (occurrence: None)
  Receive Date: 20140528
  Receipt Date: 20140620
  Transmission Date: 20141212
  Serious: Yes (Other)
  Sender: FDA-Public Use
  Company Number: AUR-APL-2014-06089

PATIENT
  Age: 18 Year
  Sex: Male

DRUGS (5)
  1. TRAMADOL 50MG CAPSULES, HARD (TRAMADOL) CAPSULE, HARD, 50MG [Suspect]
     Indication: PROCEDURAL PAIN
  2. HYDROCORTISONE SODIUM SUCCINATE [Suspect]
     Indication: HYPOPITUITARISM
  3. CODEINE 30 MG (CODEINE), 30MG [Suspect]
     Indication: PAIN
     Dosage: 120 MG (30 MG, 4 IN 1 D)
  4. MORPHINE SULFATE (MORPHINE SULFATE) INJECTION [Suspect]
     Indication: PROCEDURAL PAIN
     Route: 048
  5. MORPHINE SULFATE (MORPHINE SULFATE) INJECTION [Suspect]
     Indication: PREOPERATIVE CARE
     Route: 048

REACTIONS (1)
  - Adrenal insufficiency [None]
